FAERS Safety Report 8078759-4 (Version None)
Quarter: 2012Q1

REPORT INFORMATION
  Report Type: 
  Country: None (occurrence: None)
  Receive Date: 20120124
  Receipt Date: 20120113
  Transmission Date: 20120608
  Serious: Yes (Other)
  Sender: FDA-Public Use
  Company Number: NSR_00469_2012

PATIENT
  Age: 56 Year
  Sex: Male

DRUGS (2)
  1. PROPRANOLOL [Suspect]
     Indication: ANGINA PECTORIS
     Dosage: (320 MG QD)
  2. PROPRANOLOL [Suspect]
     Indication: HYPERTENSION
     Dosage: (320 MG QD)

REACTIONS (2)
  - PERITONITIS SCLEROSING [None]
  - RECTAL HAEMORRHAGE [None]
